FAERS Safety Report 4663420-6 (Version None)
Quarter: 2005Q2

REPORT INFORMATION
  Report Type: 
  Country: None (occurrence: None)
  Receive Date: 20050513
  Receipt Date: 20050503
  Transmission Date: 20051028
  Serious: Yes (Death)
  Sender: FDA-Public Use
  Company Number: 1804

PATIENT
  Age: 42 Year
  Sex: Female
  Weight: 78.4723 kg

DRUGS (4)
  1. AVINZA [Suspect]
     Indication: BACK PAIN
     Dosage: 60 MG QD PO
     Route: 048
     Dates: start: 20040625, end: 20040629
  2. CARISOPRODOL [Concomitant]
  3. PROMETHAZINE GEL [Concomitant]
  4. VENLAFAXINE HCL [Concomitant]

REACTIONS (8)
  - ACCIDENTAL OVERDOSE [None]
  - CYANOSIS [None]
  - FALL [None]
  - FOAMING AT MOUTH [None]
  - HYPERHIDROSIS [None]
  - RESPIRATORY ARREST [None]
  - SNORING [None]
  - SOMNOLENCE [None]
